FAERS Safety Report 24853239 (Version 1)
Quarter: 2025Q1

REPORT INFORMATION
  Report Type: Report from Study
  Country: PT (occurrence: PT)
  Receive Date: 20250117
  Receipt Date: 20250117
  Transmission Date: 20250409
  Serious: Yes (Other)
  Sender: BOEHRINGER INGELHEIM
  Company Number: PT-BoehringerIngelheim-2025-BI-001478

PATIENT
  Age: 61 Year
  Sex: Male

DRUGS (12)
  1. NEVIRAPINE [Suspect]
     Active Substance: NEVIRAPINE
     Indication: HIV infection
  2. UNSPECIFIED INGREDIENT [Suspect]
     Active Substance: UNSPECIFIED INGREDIENT
     Indication: HIV infection
  3. EMTRICITABINE [Suspect]
     Active Substance: EMTRICITABINE
     Indication: HIV infection
  4. LAMIVUDINE [Suspect]
     Active Substance: LAMIVUDINE
     Indication: HIV infection
  5. TENOFOVIR [Suspect]
     Active Substance: TENOFOVIR
     Indication: HIV infection
  6. AZT [Suspect]
     Active Substance: ZIDOVUDINE
     Indication: HIV infection
  7. EFAVIRENZ [Suspect]
     Active Substance: EFAVIRENZ
     Indication: HIV infection
  8. RILPIVIRINE [Suspect]
     Active Substance: RILPIVIRINE
     Indication: HIV infection
  9. DARUNAVIR [Suspect]
     Active Substance: DARUNAVIR
     Indication: HIV infection
  10. RITONAVIR [Suspect]
     Active Substance: RITONAVIR
     Indication: HIV infection
  11. DOLUTEGRAVIR [Suspect]
     Active Substance: DOLUTEGRAVIR
     Indication: HIV infection
  12. COBICISTAT [Suspect]
     Active Substance: COBICISTAT
     Indication: HIV infection

REACTIONS (3)
  - Lipodystrophy acquired [Unknown]
  - Eyelid ptosis [Unknown]
  - Floppy eyelid syndrome [Unknown]
